FAERS Safety Report 8168032-8 (Version None)
Quarter: 2012Q1

REPORT INFORMATION
  Report Type: 
  Country: None (occurrence: None)
  Receive Date: 20120227
  Receipt Date: 20120216
  Transmission Date: 20120608
  Serious: Yes (Other)
  Sender: FDA-Public Use
  Company Number: PHHY2012BR013898

PATIENT
  Sex: Male

DRUGS (6)
  1. DIOVAN [Suspect]
     Dosage: 160 MG, BID
  2. DIOVAN [Suspect]
     Dosage: 320 MG, BID
  3. CLONAZEPAM [Concomitant]
     Route: 048
  4. AMLODIPINE [Suspect]
     Route: 048
  5. LOSARTAN POTASSIUM [Suspect]
     Dosage: 100 MG, UNK
     Route: 048
  6. CAPTOPRIL [Suspect]
     Route: 048

REACTIONS (2)
  - DRUG INEFFECTIVE [None]
  - BLOOD PRESSURE INCREASED [None]
